FAERS Safety Report 9960902 (Version 1)
Quarter: 2014Q1

REPORT INFORMATION
  Report Type: Report from Study
  Country: US (occurrence: US)
  Receive Date: 20140305
  Receipt Date: 20140305
  Transmission Date: 20141002
  Serious: No
  Sender: FDA-Public Use
  Company Number: US-ABBVIE-13P-163-1109466-00

PATIENT
  Age: 65 Year
  Sex: Female

DRUGS (9)
  1. HUMIRA [Suspect]
     Indication: CROHN^S DISEASE
     Dates: start: 201303
  2. HUMIRA [Suspect]
     Dates: start: 20130617
  3. DIGOXIN [Concomitant]
     Indication: CARDIOVASCULAR EVENT PROPHYLAXIS
     Dosage: 1 PILL EVERY OTHER DAY ALTERNATING WITH 1/2 PILL ON THE OTHER DAYS
  4. SYNTHROID [Concomitant]
     Indication: THYROID DISORDER
     Dosage: 1 PILL DAILY
  5. ATENOLOL [Concomitant]
     Indication: BLOOD PRESSURE
     Dosage: 1.5 TABLETS DAILY
  6. BENAZEPRIL [Concomitant]
     Indication: PRODUCT USED FOR UNKNOWN INDICATION
     Dosage: 1 PILL DAILY
  7. ALEVE [Concomitant]
     Indication: PRODUCT USED FOR UNKNOWN INDICATION
  8. METFORMIN [Concomitant]
     Indication: PRODUCT USED FOR UNKNOWN INDICATION
     Dosage: 1000 MG BID
     Dates: start: 20130614
  9. GLIMEPIRIDE [Concomitant]
     Indication: PRODUCT USED FOR UNKNOWN INDICATION

REACTIONS (5)
  - Tenderness [Not Recovered/Not Resolved]
  - Injection site pain [Not Recovered/Not Resolved]
  - Hernia [Not Recovered/Not Resolved]
  - Abdominal pain [Not Recovered/Not Resolved]
  - Local swelling [Not Recovered/Not Resolved]
